FAERS Safety Report 24316518 (Version 1)
Quarter: 2024Q3

REPORT INFORMATION
  Report Type: Spontaneous
  Country: US (occurrence: None)
  Receive Date: 20240912
  Receipt Date: 20240912
  Transmission Date: 20241016
  Serious: Yes (unspecified)
  Sender: Public
  Company Number: None

PATIENT
  Age: 75 Year
  Sex: Male

DRUGS (1)
  1. LENALIDOMIDE [Suspect]
     Active Substance: LENALIDOMIDE
     Indication: Follicular lymphoma stage I
     Dosage: OTHER FREQUENCY: QD FOR 21 DAYS ON AND 7 DAYS OFF;?

REACTIONS (4)
  - Dyspepsia [None]
  - Fatigue [None]
  - Hyperhidrosis [None]
  - Blood electrolytes decreased [None]
